FAERS Safety Report 8070737-4 (Version None)
Quarter: 2012Q1

REPORT INFORMATION
  Report Type: 
  Country: None (occurrence: None)
  Receive Date: 20120125
  Receipt Date: 20120113
  Transmission Date: 20120608
  Serious: Yes (Other)
  Sender: FDA-Public Use
  Company Number: DE-UCBSA-041931

PATIENT
  Age: 56 Year
  Sex: Female
  Weight: 70 kg

DRUGS (2)
  1. VOLTAREN [Concomitant]
     Indication: MUSCULOSKELETAL PAIN
     Dosage: DAILY DOSE: 75 MG
     Dates: start: 20030101, end: 20110101
  2. NEUPRO [Suspect]
     Indication: RESTLESS LEGS SYNDROME
     Route: 062
     Dates: start: 20070705

REACTIONS (3)
  - APPLICATION SITE PRURITUS [None]
  - SKIN INJURY [None]
  - APPLICATION SITE ERYTHEMA [None]
